FAERS Safety Report 8016287-2 (Version None)
Quarter: 2011Q4

REPORT INFORMATION
  Report Type: 
  Country: None (occurrence: None)
  Receive Date: 20111230
  Receipt Date: 20111222
  Transmission Date: 20120403
  Serious: Yes (Death, Hospitalization, Disabling, Other)
  Sender: FDA-Public Use
  Company Number: US-MERCK-1110USA00594

PATIENT
  Age: 80 Year
  Sex: Male

DRUGS (1)
  1. FOSAMAX [Suspect]
     Indication: BONE DENSITY DECREASED
     Route: 048
     Dates: start: 20050101, end: 20100101

REACTIONS (5)
  - OEDEMA PERIPHERAL [None]
  - RESPIRATORY FAILURE [None]
  - DEMENTIA ALZHEIMER'S TYPE [None]
  - PNEUMONIA ASPIRATION [None]
  - FEMUR FRACTURE [None]
